FAERS Safety Report 5909003-9 (Version None)
Quarter: 2008Q3

REPORT INFORMATION
  Report Type: 
  Country: None (occurrence: None)
  Receive Date: 20080930
  Receipt Date: 20080925
  Transmission Date: 20090109
  Serious: No
  Sender: FDA-Public Use
  Company Number: 080154

PATIENT
  Age: 59 Year
  Sex: Female

DRUGS (2)
  1. HALFLYTELY [Suspect]
     Indication: COLONOSCOPY
     Dosage: 10MG/2L/1X;PO
     Route: 048
     Dates: start: 20080925
  2. SYNTHROID [Concomitant]

REACTIONS (1)
  - ABDOMINAL PAIN [None]
